FAERS Safety Report 17442828 (Version 1)
Quarter: 2020Q1

REPORT INFORMATION
  Report Type: Spontaneous
  Country: US (occurrence: US)
  Receive Date: 20190926
  Receipt Date: 20190926
  Transmission Date: 20200409
  Serious: Yes (Death, Life-Threatening, Hospitalization, Disabling)
  Sender: FDA-Public Use
  Company Number: None

PATIENT
  Age: 22 Year
  Sex: Male

DRUGS (1)
  1. THC VAPE [Suspect]
     Active Substance: .DELTA.8-TETRAHYDROCANNABINOL\DEVICE\HERBALS
     Dates: start: 20190908

REACTIONS (8)
  - Traumatic lung injury [None]
  - Throat irritation [None]
  - Nasal congestion [None]
  - Productive cough [None]
  - Pyrexia [None]
  - Feeling abnormal [None]
  - Pain [None]
  - Fatigue [None]
